FAERS Safety Report 19978687 (Version 1)
Quarter: 2021Q4

REPORT INFORMATION
  Report Type: Spontaneous
  Country: US (occurrence: US)
  Receive Date: 20211021
  Receipt Date: 20211021
  Transmission Date: 20220303
  Serious: No
  Sender: FDA-Public Use
  Company Number: None

PATIENT
  Sex: Male

DRUGS (1)
  1. TREMFYA [Suspect]
     Active Substance: GUSELKUMAB
     Indication: Psoriasis
     Dosage: ?          OTHER FREQUENCY:EVERY 8 WEEKS ;
     Route: 058
     Dates: start: 20200925

REACTIONS (7)
  - Pruritus [None]
  - Burning sensation [None]
  - Skin disorder [None]
  - Condition aggravated [None]
  - Drug ineffective [None]
  - Rash macular [None]
  - Haemorrhage [None]
